FAERS Safety Report 9219687 (Version 1)
Quarter: 2013Q2

REPORT INFORMATION
  Report Type: Report from Study
  Country: US (occurrence: US)
  Receive Date: 20130409
  Receipt Date: 20130409
  Transmission Date: 20140414
  Serious: Yes (Other)
  Sender: FDA-Public Use
  Company Number: US-BAYER-2013-042391

PATIENT
  Age: 72 Year
  Sex: Female

DRUGS (1)
  1. STIVARGA [Suspect]
     Indication: COLON CANCER
     Dosage: 160 MG, (40 MG X 4) QD
     Route: 048
     Dates: start: 20130218, end: 20130328

REACTIONS (3)
  - Neuropathy peripheral [None]
  - Abasia [Recovered/Resolved]
  - Blood magnesium decreased [Recovered/Resolved]
